FAERS Safety Report 14360232 (Version 1)
Quarter: 2018Q1

REPORT INFORMATION
  Report Type: Not Available
  Country: US (occurrence: US)
  Receive Date: 20180106
  Receipt Date: 20180106
  Transmission Date: 20180509
  Serious: No
  Sender: FDA-Public Use
  Company Number: US-NEUROCRINE BIOSCIENCES INC.-2017NBI01509

PATIENT
  Sex: Female

DRUGS (1)
  1. INGREZZA [Suspect]
     Active Substance: VALBENAZINE
     Indication: PRODUCT USED FOR UNKNOWN INDICATION
     Dates: start: 2017, end: 20171106

REACTIONS (4)
  - Loss of personal independence in daily activities [Unknown]
  - Depression [Unknown]
  - Somnolence [Unknown]
  - Drug ineffective [None]

NARRATIVE: CASE EVENT DATE: 2017
